FAERS Safety Report 9258204 (Version 1)
Quarter: 2013Q2

REPORT INFORMATION
  Report Type: Spontaneous
  Country: DE (occurrence: DE)
  Receive Date: 20130426
  Receipt Date: 20130426
  Transmission Date: 20140414
  Serious: Yes (Other)
  Sender: FDA-Public Use
  Company Number: DE-009507513-1304DEU014446

PATIENT
  Sex: Female

DRUGS (1)
  1. COSOPT-S 20MG/ML+5MG/ML AUGENTROPFEN IM EINZELDOSISBEHALTNIS [Suspect]
     Dosage: UNK
     Route: 047

REACTIONS (2)
  - Eyelid ptosis [Unknown]
  - Dry mouth [Unknown]
